FAERS Safety Report 17450258 (Version 1)
Quarter: 2020Q1

REPORT INFORMATION
  Report Type: Spontaneous
  Country: US (occurrence: US)
  Receive Date: 20200221
  Receipt Date: 20200221
  Transmission Date: 20200409
  Serious: No
  Sender: FDA-Public Use
  Company Number: None

PATIENT
  Age: 31 Year
  Sex: Female

DRUGS (13)
  1. ONFI 2.5MG/ML [Concomitant]
  2. PREVACID 30MG SOLUTAB [Concomitant]
  3. LAMICTAL ODT 200MG [Concomitant]
  4. LORATADINE 10MG [Concomitant]
     Active Substance: LORATADINE
  5. METOCLOPRAMIDE 5MG [Concomitant]
     Active Substance: METOCLOPRAMIDE
  6. BETHKIS [Suspect]
     Active Substance: TOBRAMYCIN
     Indication: PSEUDOMONAS INFECTION
     Route: 055
  7. WARFARIN [Concomitant]
     Active Substance: WARFARIN
  8. GLYCOPYRROLATE. [Concomitant]
     Active Substance: GLYCOPYRROLATE
  9. PULMOZYME 1MG/ML NEB [Concomitant]
  10. BACLOFEN 20MG [Concomitant]
     Active Substance: BACLOFEN
  11. MONTELUKAST [Concomitant]
     Active Substance: MONTELUKAST SODIUM
  12. KLOR- CON POWDER [Concomitant]
  13. LAVALBUTEROL 1.25MG NEB [Concomitant]

REACTIONS (1)
  - Upper respiratory tract infection [None]

NARRATIVE: CASE EVENT DATE: 20200217
